FAERS Safety Report 5255336-1 (Version None)
Quarter: 2007Q1

REPORT INFORMATION
  Report Type: 
  Country: None (occurrence: None)
  Receive Date: 20070305
  Receipt Date: 20070227
  Transmission Date: 20070707
  Serious: Yes (Hospitalization)
  Sender: FDA-Public Use
  Company Number: AU-GLAXOSMITHKLINE-B0460561A

PATIENT
  Sex: Male

DRUGS (1)
  1. ZYBAN [Suspect]

REACTIONS (1)
  - PAIN IN JAW [None]
